FAERS Safety Report 18889052 (Version 1)
Quarter: 2021Q1

REPORT INFORMATION
  Report Type: Spontaneous
  Country: US (occurrence: US)
  Receive Date: 20210212
  Receipt Date: 20210212
  Transmission Date: 20210420
  Serious: No
  Sender: FDA-Public Use
  Company Number: US-ROCHE-2646123

PATIENT
  Sex: Female

DRUGS (1)
  1. ROZLYTREK [Suspect]
     Active Substance: ENTRECTINIB
     Indication: LUNG NEOPLASM MALIGNANT
     Route: 048
     Dates: start: 20200620

REACTIONS (4)
  - Electrolyte imbalance [Unknown]
  - Peripheral sensory neuropathy [Unknown]
  - Urinary incontinence [Unknown]
  - Dysgeusia [Unknown]
